FAERS Safety Report 5788055-3 (Version None)
Quarter: 2008Q2

REPORT INFORMATION
  Report Type: 
  Country: None (occurrence: None)
  Receive Date: 20080625
  Receipt Date: 20080620
  Transmission Date: 20081010
  Serious: Yes (Other)
  Sender: FDA-Public Use
  Company Number: US-ELI_LILLY_AND_COMPANY-US200806004696

PATIENT
  Sex: Female

DRUGS (1)
  1. EVISTA [Suspect]
     Dosage: 60 MG, DAILY (1/D)
     Dates: start: 19990801

REACTIONS (1)
  - MENISCUS LESION [None]
